FAERS Safety Report 25180021 (Version 2)
Quarter: 2025Q2

REPORT INFORMATION
  Report Type: Spontaneous
  Country: US (occurrence: US)
  Receive Date: 20250409
  Receipt Date: 20250613
  Transmission Date: 20250716
  Serious: Yes (Death, Hospitalization, Other)
  Sender: PFIZER
  Company Number: US-PFIZER INC-PV202500042014

PATIENT
  Age: 45 Year
  Sex: Male

DRUGS (1)
  1. OXBRYTA [Suspect]
     Active Substance: VOXELOTOR
     Indication: Sickle cell disease
     Dosage: 1500 MG, DAILY
     Route: 048
     Dates: start: 202109, end: 202403

REACTIONS (20)
  - Sickle cell anaemia with crisis [Fatal]
  - Acute chest syndrome [Fatal]
  - Hypoxia [Fatal]
  - Brain oedema [Fatal]
  - Multiple organ dysfunction syndrome [Fatal]
  - Venoocclusive disease [Fatal]
  - Acute respiratory failure [Unknown]
  - Fat embolism syndrome [Unknown]
  - Acute kidney injury [Unknown]
  - Renal tubular necrosis [Unknown]
  - Anuria [Unknown]
  - Hyperkalaemia [Unknown]
  - Septic shock [Unknown]
  - Haemorrhage intracranial [Unknown]
  - Pulmonary infarction [Unknown]
  - Pneumonia [Unknown]
  - Acute hepatic failure [Unknown]
  - Pulseless electrical activity [Unknown]
  - Metabolic acidosis [Unknown]
  - Pyrexia [Unknown]

NARRATIVE: CASE EVENT DATE: 20240325
